FAERS Safety Report 6980223-8 (Version None)
Quarter: 2010Q3

REPORT INFORMATION
  Report Type: 
  Country: None (occurrence: None)
  Receive Date: 20100908
  Receipt Date: 20100828
  Transmission Date: 20110219
  Serious: Yes (Hospitalization, Other)
  Sender: FDA-Public Use
  Company Number: WAES 1005USA04594

PATIENT
  Age: 76 Year
  Sex: Female

DRUGS (10)
  1. FOSAMAX [Suspect]
     Indication: OSTEOPOROSIS
     Dosage: 35 MG/WKY/ PO
     Route: 048
     Dates: start: 20090110, end: 20100814
  2. CALCIUM CARBONATE [Suspect]
     Indication: OSTEOPOROSIS
     Dosage: 2 DOSE/DAILY/PO
     Route: 048
     Dates: end: 20100819
  3. AMLODIPINE BESYLATE [Concomitant]
  4. DIOVAN [Concomitant]
  5. EPAROSE LOCHOL (FLUVASTATIN SODIUM) [Concomitant]
  6. MERISLON [Concomitant]
  7. RIKKUNSHI-TO [Concomitant]
  8. RIZE [Concomitant]
  9. ZOCOR [Concomitant]
  10. BENIDIPINE HYDROCHLORIDE [Concomitant]

REACTIONS (6)
  - APHAGIA [None]
  - DECREASED APPETITE [None]
  - LUNG NEOPLASM MALIGNANT [None]
  - MALAISE [None]
  - PNEUMONIA [None]
  - VERTIGO [None]
